FAERS Safety Report 8173288-1 (Version None)
Quarter: 2012Q1

REPORT INFORMATION
  Report Type: 
  Country: None (occurrence: None)
  Receive Date: 20120229
  Receipt Date: 20120220
  Transmission Date: 20120608
  Serious: Yes (Other)
  Sender: FDA-Public Use
  Company Number: US-BAYER-2012-017542

PATIENT
  Age: 41 Year
  Sex: Female
  Weight: 68 kg

DRUGS (1)
  1. RID MOUSSE [Suspect]
     Indication: LICE INFESTATION
     Dosage: USED ONLY ONE TIME
     Route: 061
     Dates: start: 20120216, end: 20120216

REACTIONS (7)
  - OEDEMA PERIPHERAL [None]
  - OCULAR DISCOMFORT [None]
  - SNEEZING [None]
  - NASAL CONGESTION [None]
  - FEELING ABNORMAL [None]
  - HYPERSENSITIVITY [None]
  - LACRIMATION INCREASED [None]
